FAERS Safety Report 8233560-3 (Version None)
Quarter: 2012Q1

REPORT INFORMATION
  Report Type: 
  Country: None (occurrence: None)
  Receive Date: 20120326
  Receipt Date: 20120312
  Transmission Date: 20120608
  Serious: Yes (Hospitalization)
  Sender: FDA-Public Use
  Company Number: PT-MYLANLABS-2012S1005595

PATIENT
  Age: 74 Year
  Sex: Female

DRUGS (4)
  1. FLUVASTATIN [Concomitant]
     Route: 065
  2. PERINDOPRIL ERBUMINE [Concomitant]
     Route: 065
  3. INDAPAMIDE [Suspect]
     Indication: HYPERTENSION
     Route: 065
  4. METFORMIN HCL [Concomitant]
     Route: 065

REACTIONS (2)
  - STRESS CARDIOMYOPATHY [None]
  - HYPONATRAEMIA [None]
